FAERS Safety Report 8585892-7 (Version None)
Quarter: 2012Q3

REPORT INFORMATION
  Report Type: 
  Country: None (occurrence: None)
  Receive Date: 20120730
  Receipt Date: 20120718
  Transmission Date: 20120928
  Serious: Yes (Hospitalization)
  Sender: FDA-Public Use
  Company Number: DSA_58643_2012

PATIENT
  Age: 69 Year
  Sex: Male

DRUGS (4)
  1. CISPLATIN [Suspect]
     Indication: HYPOPHARYNGEAL CANCER
     Dosage: (60 MG/M2; EVERY CYCLE)
     Dates: start: 20100601, end: 20100801
  2. FLUOROURACIL [Suspect]
     Indication: HYPOPHARYNGEAL CANCER
     Dosage: (600 MG/M2)
     Dates: start: 20100601, end: 20100801
  3. DOCETAXEL [Suspect]
     Indication: HYPOPHARYNGEAL CANCER
     Dosage: (50 MG/M2; EVERY CYCLE)
     Dates: start: 20100601, end: 20100801
  4. THERAPEUTIC RADIOPHARMACEUTICALS (THERAPEUTIC RADIOPHARMACEUTICALS) [Suspect]
     Indication: HYPOPHARYNGEAL CANCER
     Dosage: (DF; EVERY CYCLE)
     Dates: start: 20100601, end: 20100801

REACTIONS (10)
  - PNEUMATOSIS [None]
  - GENERAL PHYSICAL HEALTH DETERIORATION [None]
  - SCAR [None]
  - DIPLEGIA [None]
  - METASTASES TO SPINE [None]
  - PHARYNGEAL DISORDER [None]
  - PHARYNGEAL FISTULA [None]
  - INFLAMMATION [None]
  - PNEUMONIA ASPIRATION [None]
  - PYREXIA [None]
